FAERS Safety Report 8545684 (Version 10)
Quarter: 2014Q2

REPORT INFORMATION
  Report Type: Spontaneous
  Country: US (occurrence: US)
  Receive Date: 20120503
  Receipt Date: 20140409
  Transmission Date: 20141212
  Serious: Yes (Hospitalization, Disabling, Other)
  Sender: FDA-Public Use
  Company Number: US-MERCK-1205USA00035

PATIENT
  Sex: Female
  Weight: 77.98 kg

DRUGS (5)
  1. FOSAMAX [Suspect]
     Indication: OSTEOPOROSIS
     Dosage: 10 MG, QD
     Route: 048
     Dates: start: 20001220, end: 2001
  2. FOSAMAX [Suspect]
     Indication: OSTEOPOROSIS PROPHYLAXIS
     Dosage: 70 MG, UNK
     Route: 048
     Dates: start: 20010220, end: 200802
  3. FOSAMAX [Suspect]
     Indication: BONE ATROPHY
     Dosage: UNK, QD
     Route: 048
     Dates: start: 1996, end: 2011
  4. ALENDRONATE SODIUM [Suspect]
     Dosage: 70 MG, UNK
     Route: 048
     Dates: start: 20080924
  5. ALENDRONATE SODIUM [Suspect]
     Dosage: 70 MG, UNK
     Route: 048
     Dates: start: 20080925

REACTIONS (47)
  - Femur fracture [Not Recovered/Not Resolved]
  - Low turnover osteopathy [Not Recovered/Not Resolved]
  - Femur fracture [Unknown]
  - Fibula fracture [Unknown]
  - Ankle fracture [Unknown]
  - Thyroidectomy [Unknown]
  - Ankle operation [Unknown]
  - Papillary thyroid cancer [Unknown]
  - Tongue neoplasm malignant stage unspecified [Unknown]
  - Metastases to lymph nodes [Unknown]
  - Basal cell carcinoma [Unknown]
  - Intramedullary rod insertion [Unknown]
  - Osteonecrosis of jaw [Unknown]
  - Exostosis of jaw [Unknown]
  - Rib fracture [Unknown]
  - Fracture [Unknown]
  - Colitis ulcerative [Unknown]
  - Hypertension [Unknown]
  - Depression [Unknown]
  - Appendicectomy [Unknown]
  - Glossitis [Unknown]
  - Oral disorder [Unknown]
  - Rib fracture [Unknown]
  - Fall [Unknown]
  - Fall [Unknown]
  - Foot fracture [Unknown]
  - Contusion [Unknown]
  - Pulmonary granuloma [Unknown]
  - Fatigue [Unknown]
  - Muscular weakness [Unknown]
  - Hysterectomy [Unknown]
  - Weight increased [Unknown]
  - Cancer surgery [Unknown]
  - Temporal arteritis [Unknown]
  - Blood cholesterol increased [Unknown]
  - Hiatus hernia [Unknown]
  - Hand fracture [Recovered/Resolved]
  - Hand fracture [Recovered/Resolved]
  - Mouth injury [Unknown]
  - Skin abrasion [Unknown]
  - Fall [Unknown]
  - Osteopenia [Unknown]
  - Tooth disorder [Unknown]
  - Salpingo-oophorectomy bilateral [Unknown]
  - Blood thyroid stimulating hormone decreased [Unknown]
  - Urinary tract infection [Not Recovered/Not Resolved]
  - Asthenia [Unknown]
